FAERS Safety Report 9239098 (Version 3)
Quarter: 2013Q4

REPORT INFORMATION
  Report Type: Report from Study
  Country: PL (occurrence: PL)
  Receive Date: 20130418
  Receipt Date: 20131011
  Transmission Date: 20140711
  Serious: Yes (Disabling, Other)
  Sender: FDA-Public Use
  Company Number: PL-ROCHE-1214361

PATIENT
  Age: 62 Year
  Sex: Female
  Weight: 90 kg

DRUGS (7)
  1. PEG-INTERFERON ALFA 2A [Suspect]
     Indication: CHRONIC HEPATITIS C
     Route: 058
     Dates: start: 20121206, end: 20130327
  2. PEG-INTERFERON ALFA 2A [Suspect]
     Route: 058
     Dates: start: 20121206
  3. RIBAVIRIN [Suspect]
     Indication: CHRONIC HEPATITIS C
     Route: 048
     Dates: start: 20121206, end: 20130329
  4. RIBAVIRIN [Suspect]
     Route: 048
     Dates: end: 20130329
  5. LORISTA H [Concomitant]
     Indication: HYPERTENSION
     Dosage: FOR 10 YEARS
     Route: 048
  6. BISOCARD [Concomitant]
     Indication: HYPERTENSION
     Dosage: FOR 10 YEARS
     Route: 048
  7. POLPRAZOL [Concomitant]
     Indication: ULCER
     Route: 048
     Dates: start: 20120313

REACTIONS (3)
  - Ischaemic stroke [Recovered/Resolved with Sequelae]
  - Visual impairment [Unknown]
  - Depressed mood [Unknown]
